FAERS Safety Report 4992357-8 (Version None)
Quarter: 2006Q2

REPORT INFORMATION
  Report Type: 
  Country: None (occurrence: None)
  Receive Date: 20060502
  Receipt Date: 20060421
  Transmission Date: 20061013
  Serious: Yes (Hospitalization)
  Sender: FDA-Public Use
  Company Number: 163-21880-06020520

PATIENT
  Age: 76 Year
  Sex: Male

DRUGS (14)
  1. REVLIMID [Suspect]
     Indication: MYELODYSPLASTIC SYNDROME
     Dosage: 10 MG, DAILY, ORAL
     Route: 048
     Dates: start: 20060126, end: 20060214
  2. PULMICORT [Concomitant]
  3. PRILOSEC [Concomitant]
  4. VITAMIN B6 [Concomitant]
  5. POTASSIUM CHLORIDE [Concomitant]
  6. GLYBURIDE [Concomitant]
  7. FOLIC ACID [Concomitant]
  8. MULTIVITAMIN [Concomitant]
  9. FUROSEMIDE [Concomitant]
  10. DIAZEPAM [Concomitant]
  11. PREDNISONE TAB [Concomitant]
  12. VICODIN [Concomitant]
  13. DUONEB [Concomitant]
  14. CLARITIN [Concomitant]

REACTIONS (21)
  - BRAIN NATRIURETIC PEPTIDE INCREASED [None]
  - CARDIAC DISORDER [None]
  - CARDIAC FAILURE CONGESTIVE [None]
  - CHEST PAIN [None]
  - COUGH [None]
  - DRY MOUTH [None]
  - DYSPHAGIA [None]
  - DYSPNOEA [None]
  - HAEMOGLOBIN DECREASED [None]
  - HEART RATE INCREASED [None]
  - MALAISE [None]
  - NEUTROPHIL COUNT DECREASED [None]
  - OEDEMA PERIPHERAL [None]
  - ORAL CANDIDIASIS [None]
  - ORTHOPNOEA [None]
  - PAROTITIS [None]
  - PHARYNGOLARYNGEAL PAIN [None]
  - PLATELET COUNT DECREASED [None]
  - PNEUMONIA [None]
  - SWELLING FACE [None]
  - TENDERNESS [None]
